FAERS Safety Report 4754552-2 (Version None)
Quarter: 2005Q3

REPORT INFORMATION
  Report Type: 
  Country: None (occurrence: None)
  Receive Date: 20050826
  Receipt Date: 20030902
  Transmission Date: 20060218
  Serious: Yes (Other)
  Sender: FDA-Public Use
  Company Number: KII-2003-0013799

PATIENT
  Age: 30 Year
  Sex: Male

DRUGS (5)
  1. OXYCONTIN [Suspect]
     Dosage: 30 MG, BID
  2. MORPHINE SULFATE [Suspect]
  3. PROZAC [Suspect]
     Dosage: 40 MG
  4. MARIJUANA (CANNABIS) [Suspect]
  5. PROPOXYPHENE HCL [Suspect]

REACTIONS (1)
  - POLYSUBSTANCE ABUSE [None]
